FAERS Safety Report 23956126 (Version 6)
Quarter: 2024Q3

REPORT INFORMATION
  Report Type: Report from Study
  Country: CN (occurrence: CN)
  Receive Date: 20240610
  Receipt Date: 20240806
  Transmission Date: 20241016
  Serious: Yes (Other)
  Sender: ASTELLAS
  Company Number: CN-ASTELLAS-2024US016511

PATIENT
  Age: 68 Year
  Sex: Male

DRUGS (1)
  1. ENFORTUMAB VEDOTIN-EJFV [Suspect]
     Active Substance: ENFORTUMAB VEDOTIN-EJFV
     Indication: Transitional cell carcinoma metastatic
     Dosage: UNK UNK, UNKNOWN FREQ.
     Route: 041
     Dates: start: 20240308, end: 20240429

REACTIONS (3)
  - Intestinal obstruction [Unknown]
  - Intestinal obstruction [Unknown]
  - COVID-19 [Unknown]

NARRATIVE: CASE EVENT DATE: 20240322
